FAERS Safety Report 9649445 (Version 1)
Quarter: 2013Q4

REPORT INFORMATION
  Report Type: Spontaneous
  Country: US (occurrence: US)
  Receive Date: 20131028
  Receipt Date: 20131028
  Transmission Date: 20140711
  Serious: Yes (Other)
  Sender: FDA-Public Use
  Company Number: US-ACTAVIS-2013-19019

PATIENT
  Age: 67 Year
  Sex: Male
  Weight: 86 kg

DRUGS (1)
  1. IBANDRONATE (WATSON LABORATORIES) [Suspect]
     Indication: BONE DISORDER
     Dosage: 1 DF, MONTHLY
     Route: 048
     Dates: start: 20131013

REACTIONS (5)
  - Musculoskeletal stiffness [Not Recovered/Not Resolved]
  - Gait disturbance [Not Recovered/Not Resolved]
  - Chest pain [Not Recovered/Not Resolved]
  - Insomnia [Not Recovered/Not Resolved]
  - Dyspnoea [Not Recovered/Not Resolved]
